FAERS Safety Report 6838027-2 (Version None)
Quarter: 2010Q3

REPORT INFORMATION
  Report Type: 
  Country: None (occurrence: None)
  Receive Date: 20100713
  Receipt Date: 20070530
  Transmission Date: 20110219
  Serious: No
  Sender: FDA-Public Use
  Company Number: US-PFIZER INC-2007045213

PATIENT
  Sex: Female
  Weight: 106.6 kg

DRUGS (7)
  1. CHANTIX [Suspect]
     Indication: SMOKING CESSATION THERAPY
     Route: 048
     Dates: start: 20070401
  2. TOPROL-XL [Concomitant]
  3. NORVASC [Concomitant]
  4. KLONOPIN [Concomitant]
  5. SYNTHROID [Concomitant]
  6. ACETYLSALICYLIC ACID [Concomitant]
  7. TRAMADOL [Concomitant]

REACTIONS (3)
  - DRUG DOSE OMISSION [None]
  - HYPERSOMNIA [None]
  - MALAISE [None]
